FAERS Safety Report 12527942 (Version 3)
Quarter: 2016Q3

REPORT INFORMATION
  Report Type: Spontaneous
  Country: US (occurrence: US)
  Receive Date: 20160705
  Receipt Date: 20160912
  Transmission Date: 20161109
  Serious: No
  Sender: FDA-Public Use
  Company Number: US-009507513-1607USA000445

PATIENT
  Age: 40 Year
  Sex: Female
  Weight: 69.84 kg

DRUGS (1)
  1. NEXPLANON [Suspect]
     Active Substance: ETONOGESTREL
     Indication: CONTRACEPTION
     Dosage: 68 MG, Q 3 YEARS
     Route: 059
     Dates: start: 20160222, end: 20160711

REACTIONS (14)
  - Dysmenorrhoea [Not Recovered/Not Resolved]
  - Depression [Not Recovered/Not Resolved]
  - Mood swings [Unknown]
  - Insomnia [Recovered/Resolved]
  - Poor quality sleep [Not Recovered/Not Resolved]
  - Abdominal pain upper [Unknown]
  - Stress [Recovered/Resolved]
  - Weight decreased [Recovered/Resolved]
  - Headache [Unknown]
  - Emotional disorder [Not Recovered/Not Resolved]
  - Weight loss poor [Not Recovered/Not Resolved]
  - Dysmenorrhoea [Recovered/Resolved]
  - Irritability [Unknown]
  - Paraesthesia [Unknown]

NARRATIVE: CASE EVENT DATE: 2016
